FAERS Safety Report 5558100-9 (Version None)
Quarter: 2007Q4

REPORT INFORMATION
  Report Type: 
  Country: None (occurrence: None)
  Receive Date: 20071214
  Receipt Date: 20071206
  Transmission Date: 20080405
  Serious: Yes (Death)
  Sender: FDA-Public Use
  Company Number: JP-SANOFI-SYNTHELABO-A01200713985

PATIENT
  Age: 82 Year
  Sex: Female

DRUGS (3)
  1. ISOVORIN [Suspect]
     Dosage: UNK
     Route: 042
     Dates: start: 20071119, end: 20071120
  2. ELPLAT [Suspect]
     Indication: LARGE INTESTINE CARCINOMA
     Dosage: 100 MG/BODY
     Route: 042
     Dates: start: 20071119, end: 20071119
  3. FLUOROURACIL [Suspect]
     Dosage: UNK
     Route: 042
     Dates: start: 20071119, end: 20071120

REACTIONS (3)
  - DIARRHOEA [None]
  - LEUKOPENIA [None]
  - VOMITING [None]
